FAERS Safety Report 15690173 (Version 2)
Quarter: 2019Q2

REPORT INFORMATION
  Report Type: Spontaneous
  Country: FR (occurrence: FR)
  Receive Date: 20181205
  Receipt Date: 20190530
  Transmission Date: 20190711
  Serious: Yes (Hospitalization)
  Sender: FDA-Public Use
  Company Number: FR-B.I. PHARMACEUTICALS,INC./RIDGEFIELD-2018-12-003918

PATIENT
  Age: 71 Year
  Sex: Male

DRUGS (1)
  1. OFEV [Suspect]
     Active Substance: NINTEDANIB
     Indication: PRODUCT USED FOR UNKNOWN INDICATION
     Route: 048
     Dates: start: 20180810, end: 20180910

REACTIONS (4)
  - Weight decreased [Recovering/Resolving]
  - Medication error [Recovered/Resolved]
  - Oesophagitis [Recovering/Resolving]
  - Wrong patient received product [Recovered/Resolved]

NARRATIVE: CASE EVENT DATE: 201808
